FAERS Safety Report 5719470-1 (Version None)
Quarter: 2008Q2

REPORT INFORMATION
  Report Type: 
  Country: None (occurrence: None)
  Receive Date: 20080428
  Receipt Date: 20080424
  Transmission Date: 20081010
  Serious: Yes (Death, Hospitalization)
  Sender: FDA-Public Use
  Company Number: JP-ASTRAZENECA-2008AP00767

PATIENT
  Age: 62 Year
  Sex: Female
  Weight: 43 kg

DRUGS (13)
  1. IRESSA [Suspect]
     Indication: LUNG ADENOCARCINOMA
     Route: 048
     Dates: start: 20071219, end: 20080129
  2. HALOPERIDOL [Concomitant]
     Indication: NAUSEA
     Route: 048
     Dates: start: 20080116, end: 20080121
  3. FENTANYL TRANSDERMAL SYSTEM [Concomitant]
     Indication: CANCER PAIN
     Route: 062
     Dates: start: 20080116, end: 20080121
  4. LOXONIN [Concomitant]
     Indication: CANCER PAIN
     Route: 048
     Dates: start: 20080116, end: 20080203
  5. CYTOTEC [Concomitant]
     Indication: GASTRITIS PROPHYLAXIS
     Route: 048
     Dates: start: 20080116, end: 20080203
  6. MUCOSTA [Concomitant]
     Indication: GASTRITIS PROPHYLAXIS
     Route: 048
     Dates: start: 20080116, end: 20080203
  7. MAGMITT [Concomitant]
     Indication: CONSTIPATION
     Route: 048
     Dates: start: 20080116, end: 20080203
  8. TOUGHMAC E [Concomitant]
     Indication: DYSPEPSIA
     Route: 048
     Dates: start: 20080116, end: 20080203
  9. GASMOTIN [Concomitant]
     Indication: CONSTIPATION
     Route: 048
     Dates: start: 20080116, end: 20080203
  10. NOVAMIN [Concomitant]
     Indication: NAUSEA
     Route: 048
     Dates: start: 20080116, end: 20080203
  11. URSO 250 [Concomitant]
     Route: 048
     Dates: start: 20080116, end: 20080203
  12. OPSO [Concomitant]
     Indication: CANCER PAIN
     Route: 048
     Dates: start: 20080116, end: 20080204
  13. OXYCONTIN [Concomitant]
     Indication: CANCER PAIN
     Route: 048
     Dates: start: 20080121, end: 20080204

REACTIONS (2)
  - INTERSTITIAL LUNG DISEASE [None]
  - LIVER DISORDER [None]
